FAERS Safety Report 22934084 (Version 2)
Quarter: 2023Q4

REPORT INFORMATION
  Report Type: Report from Study
  Country: US (occurrence: US)
  Receive Date: 20230912
  Receipt Date: 20231009
  Transmission Date: 20240110
  Serious: Yes (Hospitalization, Other)
  Sender: FDA-Public Use
  Company Number: US-HORIZON THERAPEUTICS-HZN-2023-006819

PATIENT

DRUGS (1)
  1. RAVICTI [Suspect]
     Active Substance: GLYCEROL PHENYLBUTYRATE
     Indication: Argininosuccinate lyase deficiency
     Dosage: FIRST DOSE
     Route: 065
     Dates: start: 20230605

REACTIONS (6)
  - Hyperammonaemia [Recovered/Resolved]
  - Nasopharyngitis [Recovered/Resolved]
  - Viral infection [Recovered/Resolved]
  - Lethargy [Unknown]
  - Hypokalaemia [Unknown]
  - Status epilepticus [Unknown]

NARRATIVE: CASE EVENT DATE: 20230101
